FAERS Safety Report 8215266-X (Version None)
Quarter: 2012Q1

REPORT INFORMATION
  Report Type: 
  Country: None (occurrence: None)
  Receive Date: 20120316
  Receipt Date: 20120312
  Transmission Date: 20120608
  Serious: Yes (Hospitalization)
  Sender: FDA-Public Use
  Company Number: RO-ABBOTT-12P-135-0914544-00

PATIENT
  Sex: Female

DRUGS (3)
  1. REYATAZ [Concomitant]
     Indication: HIV INFECTION
     Dates: start: 20100630
  2. ABACAVIR SULFATE/LAMIVUDINE [Concomitant]
     Indication: HIV INFECTION
     Dates: start: 20100630
  3. RITONAVIR [Suspect]
     Indication: HIV INFECTION
     Dates: start: 20100630

REACTIONS (3)
  - PAIN IN EXTREMITY [None]
  - PYREXIA [None]
  - BACK PAIN [None]
